FAERS Safety Report 9049586 (Version 2)
Quarter: 2015Q3

REPORT INFORMATION
  Report Type: Report from Study
  Country: ES (occurrence: ES)
  Receive Date: 20130205
  Receipt Date: 20150921
  Transmission Date: 20151125
  Serious: Yes (Hospitalization)
  Sender: FDA-Public Use
  Company Number: ES-PFIZER INC-2013045122

PATIENT
  Age: 56 Month
  Sex: Female

DRUGS (2)
  1. IBUPROFEN. [Suspect]
     Active Substance: IBUPROFEN
     Indication: NASOPHARYNGITIS
  2. IBUPROFEN. [Suspect]
     Active Substance: IBUPROFEN
     Indication: PYREXIA
     Dosage: 2 DF, UNK
     Route: 065

REACTIONS (3)
  - Haematemesis [Recovering/Resolving]
  - Gastrointestinal haemorrhage [Unknown]
  - Gastric disorder [Unknown]
